FAERS Safety Report 24365225 (Version 1)
Quarter: 2024Q3

REPORT INFORMATION
  Report Type: Report from Study
  Country: IE (occurrence: IE)
  Receive Date: 20240926
  Receipt Date: 20240926
  Transmission Date: 20241017
  Serious: Yes (Other)
  Sender: EMD SERONO INC
  Company Number: IE-Merck Healthcare KGaA-2024050661

PATIENT
  Age: 16 Year
  Sex: Male

DRUGS (2)
  1. MAVENCLAD [Suspect]
     Active Substance: CLADRIBINE
     Indication: Relapsing-remitting multiple sclerosis
     Dosage: YEAR ONE WEEK ONE: 2 DOSAGE FORMS ON DAYS 1 TO 2 AND 1 DOSAGE FORM ON DAYS 3 TO 5
     Route: 048
     Dates: start: 20231120
  2. MAVENCLAD [Suspect]
     Active Substance: CLADRIBINE
     Dosage: YEAR ONE WEEK FIVE: 2 DOSAGE FORMS ON DAYS 1 TO 2 AND 1 DOSAGE FORM ON DAYS 3 TO 5
     Route: 048
     Dates: start: 20231218

REACTIONS (1)
  - Lower respiratory tract infection [Recovered/Resolved]

NARRATIVE: CASE EVENT DATE: 20240101
